FAERS Safety Report 6260170-X (Version None)
Quarter: 2009Q3

REPORT INFORMATION
  Report Type: 
  Country: None (occurrence: None)
  Receive Date: 20090708
  Receipt Date: 20090707
  Transmission Date: 20100115
  Serious: Yes (Other)
  Sender: FDA-Public Use
  Company Number: A0795582A

PATIENT
  Age: 9 Year
  Sex: Female

DRUGS (2)
  1. SERETIDE [Suspect]
     Indication: ASTHMA
     Dates: start: 20060101
  2. MONTELUKAST [Concomitant]
     Dosage: 4MG PER DAY
     Dates: start: 20090401

REACTIONS (3)
  - BLOOD BILIRUBIN UNCONJUGATED INCREASED [None]
  - GLUCOSE-6-PHOSPHATE DEHYDROGENASE DEFICIENCY [None]
  - JAUNDICE [None]
